FAERS Safety Report 16934433 (Version 1)
Quarter: 2019Q4

REPORT INFORMATION
  Report Type: Spontaneous
  Country: US (occurrence: US)
  Receive Date: 20191018
  Receipt Date: 20191018
  Transmission Date: 20200122
  Serious: Yes (Life-Threatening, Hospitalization)
  Sender: FDA-Public Use
  Company Number: US-MYLANLABS-2019M1097742

PATIENT
  Age: 79 Year
  Sex: Female

DRUGS (4)
  1. SOLU-MEDROL [Suspect]
     Active Substance: METHYLPREDNISOLONE SODIUM SUCCINATE
     Indication: VASCULITIS
     Dosage: HIGH DOSE
     Route: 042
  2. PREDNISONE. [Concomitant]
     Active Substance: PREDNISONE
     Indication: RHEUMATOID ARTHRITIS
     Dosage: LOW-DOSE
     Route: 065
  3. PRAXBIND [Suspect]
     Active Substance: IDARUCIZUMAB
     Indication: PULMONARY ALVEOLAR HAEMORRHAGE
     Route: 065
  4. METHOTREXATE. [Suspect]
     Active Substance: METHOTREXATE
     Indication: VASCULITIS
     Dosage: A DOSE OF METHOTREXATE WAS ADMINISTERED
     Route: 065

REACTIONS (1)
  - Drug ineffective [Not Recovered/Not Resolved]
